FAERS Safety Report 4974049-4 (Version None)
Quarter: 2006Q1

REPORT INFORMATION
  Report Type: 
  Country: None (occurrence: None)
  Receive Date: 20060215
  Receipt Date: 20060103
  Transmission Date: 20060701
  Serious: No
  Sender: FDA-Public Use
  Company Number: US200601000359

PATIENT
  Age: 67 Year
  Sex: Male

DRUGS (2)
  1. CIALIS [Suspect]
     Indication: ERECTILE DYSFUNCTION
     Dosage: 20 MG
     Dates: start: 20060101, end: 20060101
  2. CLARITIN /USA/ (LORATADINE) [Concomitant]

REACTIONS (1)
  - ABNORMAL SLEEP-RELATED EVENT [None]
